FAERS Safety Report 23815203 (Version 1)
Quarter: 2024Q2

REPORT INFORMATION
  Report Type: Spontaneous
  Country: US (occurrence: None)
  Receive Date: 20240502
  Receipt Date: 20240502
  Transmission Date: 20240716
  Serious: Yes (Hospitalization, Disabling)
  Sender: FDA-Public Use
  Company Number: None

PATIENT
  Age: 46 Year
  Sex: Female
  Weight: 75.15 kg

DRUGS (1)
  1. CAPLYTA [Suspect]
     Active Substance: LUMATEPERONE
     Indication: Bipolar disorder
     Dosage: 1 TABLET AT BEDTIME ORAL?
     Route: 048
     Dates: start: 20231111, end: 20240208

REACTIONS (4)
  - Chest pain [None]
  - Diarrhoea [None]
  - Vitamin K decreased [None]
  - Blood magnesium decreased [None]

NARRATIVE: CASE EVENT DATE: 20240208
